FAERS Safety Report 5742311-3 (Version None)
Quarter: 2008Q2

REPORT INFORMATION
  Report Type: 
  Country: None (occurrence: None)
  Receive Date: 20080514
  Receipt Date: 20080514
  Transmission Date: 20081010
  Serious: Yes (Life-Threatening, Hospitalization)
  Sender: FDA-Public Use
  Company Number: None

PATIENT
  Sex: Female
  Weight: 90.7194 kg

DRUGS (1)
  1. NUVARING [Suspect]
     Indication: CONTRACEPTION
     Dosage: 1X MONTH INTRACERVICAL
     Route: 019
     Dates: start: 20080305, end: 20080507

REACTIONS (1)
  - PULMONARY EMBOLISM [None]
